FAERS Safety Report 6270850-8 (Version None)
Quarter: 2009Q3

REPORT INFORMATION
  Report Type: 
  Country: None (occurrence: None)
  Receive Date: 20090715
  Receipt Date: 20090630
  Transmission Date: 20100115
  Serious: Yes (Hospitalization)
  Sender: FDA-Public Use
  Company Number: 2009235345

PATIENT
  Age: 86 Year
  Sex: Male

DRUGS (3)
  1. FRAGMIN [Suspect]
     Indication: RENAL DISORDER
     Dosage: 15000 IU, 1X/DAY
     Dates: start: 20090625, end: 20090627
  2. COUMADIN [Concomitant]
  3. LOVENOX [Concomitant]

REACTIONS (2)
  - INJECTION SITE VESICLES [None]
  - PNEUMONIA [None]
